FAERS Safety Report 12729766 (Version 1)
Quarter: 2016Q3

REPORT INFORMATION
  Report Type: Spontaneous
  Country: US (occurrence: US)
  Receive Date: 20160909
  Receipt Date: 20160909
  Transmission Date: 20161109
  Serious: Yes (Death, Hospitalization, Other)
  Sender: FDA-Public Use
  Company Number: US-LUNDBECK-DKLU2018880

PATIENT
  Age: 83 Year
  Sex: Male

DRUGS (1)
  1. NORTHERA [Suspect]
     Active Substance: DROXIDOPA
     Indication: PARKINSON^S DISEASE
     Route: 048
     Dates: start: 20160415, end: 20160825

REACTIONS (5)
  - Hip fracture [Unknown]
  - Post procedural complication [Fatal]
  - Plasma cell myeloma [Unknown]
  - Fall [Unknown]
  - Aspiration [Fatal]

NARRATIVE: CASE EVENT DATE: 20160820
